FAERS Safety Report 9624128 (Version 3)
Quarter: 2014Q1

REPORT INFORMATION
  Report Type: Spontaneous
  Country: DE (occurrence: DE)
  Receive Date: 20131015
  Receipt Date: 20140106
  Transmission Date: 20141002
  Serious: Yes (Hospitalization, Other)
  Sender: FDA-Public Use
  Company Number: PHHY2013DE115253

PATIENT
  Sex: Female

DRUGS (4)
  1. SANDIMMUN [Suspect]
     Indication: PROPHYLAXIS AGAINST TRANSPLANT REJECTION
     Dosage: 1.5 MG/KG, BID
     Route: 042
     Dates: start: 20130930, end: 201310
  2. SANDIMMUN [Suspect]
     Indication: PROPHYLAXIS AGAINST GRAFT VERSUS HOST DISEASE
  3. SANDIMMUN OPTORAL [Suspect]
     Indication: PROPHYLAXIS AGAINST TRANSPLANT REJECTION
     Route: 048
     Dates: start: 201310, end: 201310
  4. SANDIMMUN OPTORAL [Suspect]
     Indication: PROPHYLAXIS AGAINST GRAFT VERSUS HOST DISEASE
     Dosage: 25 MG, BID
     Route: 048
     Dates: start: 201310

REACTIONS (6)
  - Myocardial ischaemia [Not Recovered/Not Resolved]
  - Electrocardiogram ST segment depression [Recovered/Resolved]
  - Pericardial effusion [Not Recovered/Not Resolved]
  - Atrial fibrillation [Not Recovered/Not Resolved]
  - Angina pectoris [Recovered/Resolved]
  - Immunosuppressant drug level increased [Recovered/Resolved]
